FAERS Safety Report 21195451 (Version 1)
Quarter: 2022Q3

REPORT INFORMATION
  Report Type: Spontaneous
  Country: US (occurrence: US)
  Receive Date: 20220810
  Receipt Date: 20220810
  Transmission Date: 20221026
  Serious: Yes (Hospitalization, Other)
  Sender: FDA-Public Use
  Company Number: US-FreseniusKabi-FK202211018

PATIENT
  Age: 24 Year
  Sex: Male

DRUGS (2)
  1. DOXYCYCLINE [Suspect]
     Active Substance: DOXYCYCLINE
     Indication: Aneurysmal bone cyst
     Dosage: DOXYCYCLINE (40 MG/ML IN NORMAL SALINE) WAS MIXED, 1:1, WITH 25 PERCENT HUMAN SERUM ALBUMIN AND AGIT
  2. ALBUMIN HUMAN [Concomitant]
     Active Substance: ALBUMIN HUMAN
     Indication: Aneurysmal bone cyst
     Dosage: DOXYCYCLINE (40 MG/ML IN NORMAL SALINE) WAS MIXED, 1:1, WITH 25 PERCENT HUMAN SERUM ALBUMIN AND AGIT

REACTIONS (1)
  - Cerebral infarction [Recovered/Resolved]
